FAERS Safety Report 7779305-2 (Version None)
Quarter: 2011Q3

REPORT INFORMATION
  Report Type: 
  Country: None (occurrence: None)
  Receive Date: 20110926
  Receipt Date: 20110916
  Transmission Date: 20111222
  Serious: Yes (Other)
  Sender: FDA-Public Use
  Company Number: US-ASTRAZENECA-2010SE48444

PATIENT
  Age: 56 Year
  Sex: Female

DRUGS (3)
  1. LIPITOR [Concomitant]
  2. NEXIUM [Suspect]
     Route: 048
  3. PLAVIX [Concomitant]

REACTIONS (7)
  - OESOPHAGEAL PAIN [None]
  - OESOPHAGEAL DYSPLASIA [None]
  - GASTRIC DYSPLASIA [None]
  - GASTROOESOPHAGEAL REFLUX DISEASE [None]
  - THROAT CANCER [None]
  - VOMITING [None]
  - DRUG DOSE OMISSION [None]
